FAERS Safety Report 9530629 (Version 1)
Quarter: 2013Q3

REPORT INFORMATION
  Report Type: Spontaneous
  Country: DE (occurrence: DE)
  Receive Date: 20130918
  Receipt Date: 20130918
  Transmission Date: 20140515
  Serious: Yes (Other)
  Sender: FDA-Public Use
  Company Number: DE-RANBAXY-2013R1-73080

PATIENT
  Age: 60 Year
  Sex: Female
  Weight: 54 kg

DRUGS (1)
  1. DOXYCYCLINE [Suspect]
     Indication: ERYTHEMA MIGRANS
     Dosage: 1 DF, BID
     Route: 065
     Dates: start: 20130518, end: 20130523

REACTIONS (3)
  - Headache [Recovering/Resolving]
  - Disturbance in attention [Recovering/Resolving]
  - Headache [Recovering/Resolving]
